FAERS Safety Report 21184437 (Version 2)
Quarter: 2022Q4

REPORT INFORMATION
  Report Type: Report from Study
  Country: US (occurrence: US)
  Receive Date: 20220808
  Receipt Date: 20221103
  Transmission Date: 20230113
  Serious: Yes (Hospitalization)
  Sender: FDA-Public Use
  Company Number: US-BRISTOL-MYERS SQUIBB COMPANY-2022-085081

PATIENT
  Age: 60 Year
  Sex: Male
  Weight: 68.95 kg

DRUGS (5)
  1. REVLIMID [Suspect]
     Active Substance: LENALIDOMIDE
     Indication: Plasma cell myeloma
     Dosage: 21 OUT OF 28 DAYS
     Route: 048
     Dates: start: 20220506
  2. REVLIMID [Suspect]
     Active Substance: LENALIDOMIDE
     Dosage: TAKE 1 CAPSULE DAILY
     Route: 048
     Dates: start: 20220506
  3. LEVETIRACETAM [Concomitant]
     Active Substance: LEVETIRACETAM
     Indication: Product used for unknown indication
  4. CARBAMAZEPINE [Concomitant]
     Active Substance: CARBAMAZEPINE
     Indication: Product used for unknown indication
  5. COVID-19 VACCINE [Concomitant]
     Indication: COVID-19 immunisation

REACTIONS (1)
  - Adrenal disorder [Unknown]

NARRATIVE: CASE EVENT DATE: 20220701
